FAERS Safety Report 6300501-5 (Version None)
Quarter: 2009Q3

REPORT INFORMATION
  Report Type: 
  Country: None (occurrence: None)
  Receive Date: 20090803
  Receipt Date: 20090728
  Transmission Date: 20100115
  Serious: Yes (Life-Threatening)
  Sender: FDA-Public Use
  Company Number: FR-GUERBET-20090108

PATIENT
  Age: 63 Year

DRUGS (1)
  1. HEXABRIX [Suspect]
     Indication: ARTERIOGRAM CORONARY
     Dosage: INTRAVENOUS
     Route: 042
     Dates: start: 20090411, end: 20090411

REACTIONS (2)
  - ANGIOEDEMA [None]
  - OROPHARYNGEAL DISCOMFORT [None]
